FAERS Safety Report 22850895 (Version 6)
Quarter: 2024Q3

REPORT INFORMATION
  Report Type: Spontaneous
  Country: JP (occurrence: JP)
  Receive Date: 20230822
  Receipt Date: 20240703
  Transmission Date: 20241017
  Serious: Yes (Death, Other)
  Sender: MERCK
  Company Number: JP-MSD-2304JPN001210J

PATIENT
  Age: 65 Year
  Sex: Female

DRUGS (4)
  1. KEYTRUDA [Suspect]
     Active Substance: PEMBROLIZUMAB
     Indication: Uterine cancer
     Dosage: UNK
     Route: 041
     Dates: start: 20220303, end: 20230201
  2. LENVATINIB MESYLATE [Suspect]
     Active Substance: LENVATINIB MESYLATE
     Indication: Uterine cancer
     Dosage: 20 MILLIGRAM, QD
     Route: 048
     Dates: start: 20220303, end: 2022
  3. LENVATINIB MESYLATE [Suspect]
     Active Substance: LENVATINIB MESYLATE
     Dosage: 14 MILLIGRAM, QD
     Route: 048
     Dates: start: 20220601
  4. LENVATINIB MESYLATE [Suspect]
     Active Substance: LENVATINIB MESYLATE
     Dosage: UNK
     Route: 048
     Dates: end: 20230201

REACTIONS (7)
  - Malignant neoplasm progression [Fatal]
  - Cholecystitis acute [Recovered/Resolved]
  - Hypothyroidism [Unknown]
  - Pneumonia [Recovered/Resolved]
  - Platelet disorder [Unknown]
  - Infusion related reaction [Recovered/Resolved]
  - Malaise [Unknown]

NARRATIVE: CASE EVENT DATE: 20220314
